FAERS Safety Report 22817287 (Version 3)
Quarter: 2024Q1

REPORT INFORMATION
  Report Type: Spontaneous
  Country: GB (occurrence: GB)
  Receive Date: 20230812
  Receipt Date: 20240103
  Transmission Date: 20240410
  Serious: Yes (Hospitalization, Other)
  Sender: FDA-Public Use
  Company Number: GB-002147023-NVSC2022GB303124-

PATIENT
  Age: 2 Year

DRUGS (9)
  1. ONDANSETRON [Suspect]
     Active Substance: ONDANSETRON
     Indication: Nausea
     Dosage: DOSAGE TEXT: UNK (ORODISPERSIBLE FILM), DURATION : 584 DAYS
     Route: 048
     Dates: start: 20210517, end: 20221221
  2. ONDANSETRON [Suspect]
     Active Substance: ONDANSETRON
     Indication: Nausea
     Dosage: UNK (ORODISPERSIBLE FILM)
     Route: 065
     Dates: start: 20210517, end: 20221221
  3. CRIZOTINIB [Suspect]
     Active Substance: CRIZOTINIB
     Indication: Product used for unknown indication
     Dosage: DOSAGE TEXT: 87.5 MG, DURATION : 44 DAYS
     Route: 065
     Dates: start: 20221108, end: 20221221
  4. SODIUM PHOSPHATE, MONOBASIC [Suspect]
     Active Substance: SODIUM PHOSPHATE, MONOBASIC
     Indication: Hypophosphataemia
     Dosage: UNK (UNKNOWN; CUMULATIVE DOSE IS 768)
     Route: 065
     Dates: start: 20221205, end: 20221222
  5. SODIUM PHOSPHATE, MONOBASIC [Suspect]
     Active Substance: SODIUM PHOSPHATE, MONOBASIC
     Indication: Hypophosphataemia
     Dosage: TIME INTERVAL: 0.333 DAYS: DOSAGE TEXT: UNK (UNKNOWN; CUMULATIVE DOSE IS 768), DURATION : 18 DAYS
     Route: 048
     Dates: start: 20221205, end: 20221222
  6. SODIUM PHOSPHATE, MONOBASIC [Suspect]
     Active Substance: SODIUM PHOSPHATE, MONOBASIC
     Indication: Hypophosphataemia
     Dosage: DOSAGE TEXT: 48 MMOL, QD (16 MMOL, TID), DURATION : 18 DAYS
     Route: 048
     Dates: start: 20221205, end: 20221222
  7. TEMSIROLIMUS [Suspect]
     Active Substance: TEMSIROLIMUS
     Indication: Product used for unknown indication
     Dosage: DOSAGE TEXT: 23 MG, DURATION : 35 DAYS
     Route: 065
     Dates: start: 20221108, end: 20221212
  8. COTRIMOXAZOLE [Concomitant]
     Active Substance: SULFAMETHOXAZOLE\TRIMETHOPRIM
     Indication: Prophylaxis
     Dosage: UNK (STI)
     Dates: start: 20210517, end: 20221220
  9. COTRIMOXAZOLE [Concomitant]
     Active Substance: SULFAMETHOXAZOLE\TRIMETHOPRIM
     Indication: Prophylaxis
     Dosage: DOSAGE TEXT: UNK (STI), DURATION : 583 DAYS
     Route: 048
     Dates: start: 20210517, end: 20221220

REACTIONS (7)
  - Pyrexia [Unknown]
  - Gastroenteritis [Recovered/Resolved]
  - Diarrhoea [Unknown]
  - Neoplasm malignant [Unknown]
  - Metapneumovirus infection [Unknown]
  - Dehydration [Unknown]
  - Vomiting [Unknown]

NARRATIVE: CASE EVENT DATE: 20221220
